FAERS Safety Report 21171727 (Version 2)
Quarter: 2022Q3

REPORT INFORMATION
  Report Type: Report from Study
  Country: CA (occurrence: None)
  Receive Date: 20220804
  Receipt Date: 20220812
  Transmission Date: 20221026
  Serious: Yes (Other)
  Sender: FDA-Public Use
  Company Number: CA-Merck Healthcare KGaA-9259466

PATIENT
  Age: 56 Year
  Sex: Female

DRUGS (1)
  1. REBIF [Suspect]
     Active Substance: INTERFERON BETA-1A
     Indication: Multiple sclerosis
     Dosage: REBIF MANUAL SYRINGE
     Route: 058
     Dates: start: 20180727

REACTIONS (8)
  - Gait disturbance [Recovered/Resolved]
  - Fall [Recovered/Resolved]
  - Hip fracture [Recovering/Resolving]
  - Injection site erythema [Unknown]
  - Injection site pruritus [Unknown]
  - Injection site induration [Unknown]
  - Upper limb fracture [Recovering/Resolving]
  - Lower limb fracture [Recovering/Resolving]

NARRATIVE: CASE EVENT DATE: 20201101
